FAERS Safety Report 6833092-0 (Version None)
Quarter: 2010Q3

REPORT INFORMATION
  Report Type: 
  Country: None (occurrence: None)
  Receive Date: 20100712
  Receipt Date: 20100601
  Transmission Date: 20110219
  Serious: No
  Sender: FDA-Public Use
  Company Number: US-BIOGENIDEC-2010BI018601

PATIENT
  Age: 71 Year
  Sex: Female

DRUGS (1)
  1. TYSABRI [Suspect]
     Indication: MULTIPLE SCLEROSIS
     Route: 042
     Dates: start: 20080403

REACTIONS (5)
  - ASTHENIA [None]
  - CENTRAL NERVOUS SYSTEM LESION [None]
  - HYPOAESTHESIA [None]
  - PAIN IN EXTREMITY [None]
  - VITAMIN D DECREASED [None]
